FAERS Safety Report 5006046-7 (Version None)
Quarter: 2006Q1

REPORT INFORMATION
  Report Type: 
  Country: None (occurrence: None)
  Receive Date: 20060320
  Receipt Date: 20050705
  Transmission Date: 20060701
  Serious: Yes (Hospitalization)
  Sender: FDA-Public Use
  Company Number: 2004-05-0382

PATIENT
  Age: 49 Year
  Sex: Female
  Weight: 97.5234 kg

DRUGS (3)
  1. PEG-INTRON [Suspect]
     Indication: HEPATITIS C
     Dosage: 150 MG QW
     Dates: start: 20031106, end: 20040505
  2. RIBAVIRIN [Suspect]
     Indication: HEPATITIS C
     Dosage: 1200 MG QD ORAL
     Route: 048
     Dates: start: 20031106, end: 20040505
  3. BENADRYL [Suspect]
     Indication: INSOMNIA
     Dosage: 20 TABLETS ORAL
     Route: 048
     Dates: start: 20040505, end: 20040505

REACTIONS (7)
  - DISORIENTATION [None]
  - DRUG SCREEN POSITIVE [None]
  - FATIGUE [None]
  - GAIT DISTURBANCE [None]
  - INSOMNIA [None]
  - ORAL CANDIDIASIS [None]
  - SUICIDE ATTEMPT [None]
